FAERS Safety Report 23835942 (Version 1)
Quarter: 2024Q2

REPORT INFORMATION
  Report Type: Spontaneous
  Country: US (occurrence: None)
  Receive Date: 20240507
  Receipt Date: 20240507
  Transmission Date: 20240716
  Serious: Yes (Hospitalization)
  Sender: FDA-Public Use
  Company Number: None

PATIENT
  Age: 55 Year
  Sex: Male
  Weight: 99.7 kg

DRUGS (1)
  1. WARFARIN SODIUM [Suspect]
     Active Substance: WARFARIN SODIUM
     Dates: start: 20201211, end: 20221004

REACTIONS (3)
  - Treatment failure [None]
  - Anticoagulation drug level above therapeutic [None]
  - Thrombosis [None]

NARRATIVE: CASE EVENT DATE: 20221004
